FAERS Safety Report 6994506-9 (Version None)
Quarter: 2010Q3

REPORT INFORMATION
  Report Type: 
  Country: None (occurrence: None)
  Receive Date: 20100917
  Receipt Date: 20100909
  Transmission Date: 20110219
  Serious: Yes (Hospitalization, Other)
  Sender: FDA-Public Use
  Company Number: BR-JNJFOC-20100903871

PATIENT
  Sex: Female

DRUGS (2)
  1. PREFEST [Suspect]
     Indication: MENOPAUSAL SYMPTOMS
     Route: 048
  2. PREFEST [Suspect]
     Indication: HORMONE REPLACEMENT THERAPY
     Route: 048

REACTIONS (7)
  - ARRHYTHMIA [None]
  - BREAST DISCHARGE [None]
  - BREAST HYPERPLASIA [None]
  - FATIGUE [None]
  - FIBROCYSTIC BREAST DISEASE [None]
  - METAPLASIA [None]
  - SKIN LESION [None]
